FAERS Safety Report 6326021-X (Version None)
Quarter: 2009Q3

REPORT INFORMATION
  Report Type: 
  Country: None (occurrence: None)
  Receive Date: 20090824
  Receipt Date: 20090810
  Transmission Date: 20100115
  Serious: Yes (Other)
  Sender: FDA-Public Use
  Company Number: US-TYCO HEALTHCARE/MALLINCKRODT-T200901553

PATIENT
  Sex: Female

DRUGS (1)
  1. PAMELOR [Suspect]

REACTIONS (12)
  - ATRIAL SEPTAL DEFECT [None]
  - ATTENTION DEFICIT/HYPERACTIVITY DISORDER [None]
  - AUTISM SPECTRUM DISORDER [None]
  - CONGENITAL CENTRAL NERVOUS SYSTEM ANOMALY [None]
  - CRANIOSYNOSTOSIS [None]
  - DEAFNESS NEUROSENSORY [None]
  - DEVELOPMENTAL DELAY [None]
  - DRUG EXPOSURE DURING PREGNANCY [None]
  - HYDROCEPHALUS [None]
  - PORENCEPHALY [None]
  - TRACHEO-OESOPHAGEAL FISTULA [None]
  - VENTRICULAR SEPTAL DEFECT [None]
